FAERS Safety Report 18403723 (Version 3)
Quarter: 2020Q4

REPORT INFORMATION
  Report Type: Report from Study
  Country: None (occurrence: US)
  Receive Date: 20201020
  Receipt Date: 20201117
  Transmission Date: 20210114
  Serious: Yes (Hospitalization)
  Sender: FDA-Public Use
  Company Number: US-ABBVIE-20K-163-3611248-00

PATIENT
  Age: 73 Year
  Sex: Male

DRUGS (3)
  1. VENCLEXTA [Suspect]
     Active Substance: VENETOCLAX
     Route: 048
     Dates: start: 20201013, end: 202010
  2. VENCLEXTA [Suspect]
     Active Substance: VENETOCLAX
     Indication: CHRONIC LYMPHOCYTIC LEUKAEMIA
     Route: 048
     Dates: start: 20201001, end: 202010
  3. VENCLEXTA [Suspect]
     Active Substance: VENETOCLAX
     Route: 048
     Dates: start: 20201024, end: 202010

REACTIONS (6)
  - Infusion related reaction [Unknown]
  - Feeling hot [Unknown]
  - Infusion [Unknown]
  - White blood cell disorder [Unknown]
  - White blood cell count decreased [Unknown]
  - Erythema [Unknown]

NARRATIVE: CASE EVENT DATE: 202010
